FAERS Safety Report 10394276 (Version 2)
Quarter: 2014Q3

REPORT INFORMATION
  Report Type: Report from Study
  Country: FR (occurrence: FR)
  Receive Date: 20140819
  Receipt Date: 20140910
  Transmission Date: 20150326
  Serious: No
  Sender: FDA-Public Use
  Company Number: FR-JNJFOC-20140813208

PATIENT
  Age: 69 Year
  Sex: Female
  Weight: 69 kg

DRUGS (9)
  1. FUROSEMIDE. [Concomitant]
     Active Substance: FUROSEMIDE
  2. IBRUTINIB [Suspect]
     Active Substance: IBRUTINIB
     Indication: CHRONIC LYMPHOCYTIC LEUKAEMIA
     Route: 048
     Dates: start: 20140604
  3. LEVOFLOXACIN [Concomitant]
     Active Substance: LEVOFLOXACIN
     Indication: COUGH
  4. ROCEPHIN [Suspect]
     Active Substance: CEFTRIAXONE SODIUM
     Indication: COUGH
  5. KALEROID [Concomitant]
  6. LEVOCETIRIZINE [Concomitant]
     Active Substance: LEVOCETIRIZINE
     Indication: COUGH
  7. COZAAR [Concomitant]
     Active Substance: LOSARTAN POTASSIUM
  8. LORAMYC [Concomitant]
     Active Substance: MICONAZOLE
  9. AMOXICILLIN. [Concomitant]
     Active Substance: AMOXICILLIN
     Indication: COUGH

REACTIONS (6)
  - Haemoglobin decreased [Recovering/Resolving]
  - Pruritus [Unknown]
  - Oedema peripheral [Recovered/Resolved]
  - Erythema [Unknown]
  - Neutrophil count increased [Unknown]
  - Face oedema [Recovered/Resolved]

NARRATIVE: CASE EVENT DATE: 20140626
